FAERS Safety Report 21589738 (Version 2)
Quarter: 2023Q1

REPORT INFORMATION
  Report Type: Spontaneous
  Country: DE (occurrence: None)
  Receive Date: 20221114
  Receipt Date: 20230203
  Transmission Date: 20230417
  Serious: Yes (Hospitalization, Other)
  Sender: FDA-Public Use
  Company Number: 2022A364650

PATIENT
  Age: 63 Year
  Sex: Male
  Weight: 94 kg

DRUGS (6)
  1. TEZEPELUMAB [Suspect]
     Active Substance: TEZEPELUMAB
     Indication: Asthma
     Route: 065
     Dates: start: 20180822
  2. BECLOMETHASONE\FORMOTEROL [Concomitant]
     Active Substance: BECLOMETHASONE\FORMOTEROL
     Route: 065
  3. TIOTROPIUM [Concomitant]
     Active Substance: TIOTROPIUM
     Route: 065
  4. MONTELUKAST [Concomitant]
     Active Substance: MONTELUKAST SODIUM
     Route: 065
  5. PREDNISOLONE [Concomitant]
     Active Substance: PREDNISOLONE
     Route: 065
  6. ALBUTEROL [Concomitant]
     Active Substance: ALBUTEROL
     Route: 065

REACTIONS (4)
  - Atrial fibrillation [Unknown]
  - Echocardiogram abnormal [Unknown]
  - Angiopathy [Unknown]
  - Nasal congestion [Unknown]

NARRATIVE: CASE EVENT DATE: 20190601
